FAERS Safety Report 20872541 (Version 2)
Quarter: 2022Q2

REPORT INFORMATION
  Report Type: Spontaneous
  Country: IT (occurrence: None)
  Receive Date: 20220525
  Receipt Date: 20220528
  Transmission Date: 20220721
  Serious: Yes (Hospitalization)
  Sender: FDA-Public Use
  Company Number: IT-ROCHE-3099364

PATIENT
  Age: 64 Year
  Sex: Male
  Weight: 69 kg

DRUGS (2)
  1. ATEZOLIZUMAB [Suspect]
     Active Substance: ATEZOLIZUMAB
     Indication: Hepatic cancer
     Route: 042
     Dates: start: 20220221, end: 20220504
  2. BEVACIZUMAB [Suspect]
     Active Substance: BEVACIZUMAB
     Indication: Hepatic cancer
     Route: 042
     Dates: start: 20220221, end: 20220504

REACTIONS (1)
  - Haemoperitoneum [Recovering/Resolving]

NARRATIVE: CASE EVENT DATE: 20220508
